FAERS Safety Report 5644253-0 (Version None)
Quarter: 2008Q1

REPORT INFORMATION
  Report Type: 
  Country: None (occurrence: None)
  Receive Date: 20080229
  Receipt Date: 20080222
  Transmission Date: 20080703
  Serious: Yes (Hospitalization, Other)
  Sender: FDA-Public Use
  Company Number: ZA-ASTRAZENECA-2008SE00439

PATIENT
  Age: 23289 Day
  Sex: Male
  Weight: 68.1 kg

DRUGS (3)
  1. ROSUVASTATIN [Suspect]
     Indication: CARDIOVASCULAR EVENT PROPHYLAXIS
     Route: 048
     Dates: start: 20060903
  2. DAPAMAX [Concomitant]
     Indication: HYPERTENSION
     Route: 048
     Dates: start: 20060605
  3. BILOCOR [Concomitant]
     Indication: HYPERTENSION
     Route: 048
     Dates: start: 20060605

REACTIONS (1)
  - RENAL CELL CARCINOMA [None]
